FAERS Safety Report 18442640 (Version 3)
Quarter: 2021Q3

REPORT INFORMATION
  Report Type: Spontaneous
  Country: AU (occurrence: AU)
  Receive Date: 20201029
  Receipt Date: 20210813
  Transmission Date: 20211014
  Serious: Yes (Hospitalization)
  Sender: FDA-Public Use
  Company Number: AU-AMERICAN REGENT INC-2020002264

PATIENT
  Age: 30 Year
  Sex: Female

DRUGS (1)
  1. FERINJECT [Suspect]
     Active Substance: FERRIC CARBOXYMALTOSE
     Indication: PRODUCT USED FOR UNKNOWN INDICATION
     Dosage: 1 GM
     Dates: start: 20200506, end: 20200506

REACTIONS (10)
  - Bradycardia [Recovered/Resolved]
  - Skin discolouration [Not Recovered/Not Resolved]
  - Malaise [Recovered/Resolved]
  - Hypoxia [Unknown]
  - Urticaria [Recovered/Resolved]
  - Peripheral swelling [Unknown]
  - Pallor [Unknown]
  - Blood pressure immeasurable [Recovered/Resolved]
  - Circulatory collapse [Recovered/Resolved]
  - Hypertension [Unknown]

NARRATIVE: CASE EVENT DATE: 2020
